FAERS Safety Report 19644029 (Version 3)
Quarter: 2021Q3

REPORT INFORMATION
  Report Type: Spontaneous
  Country: US (occurrence: US)
  Receive Date: 20210731
  Receipt Date: 20210908
  Transmission Date: 20211014
  Serious: No
  Sender: FDA-Public Use
  Company Number: NVSC2021US168233

PATIENT
  Age: 20 Year
  Sex: Male

DRUGS (1)
  1. ADAKVEO [Suspect]
     Active Substance: CRIZANLIZUMAB-TMCA
     Indication: SICKLE CELL DISEASE
     Dosage: 5 MG/KG (WEEK 0, WEEK 2, Q4 WEEKS THEREAFTER)
     Route: 042

REACTIONS (2)
  - Chest pain [Unknown]
  - Chest discomfort [Unknown]
